FAERS Safety Report 7178215-1 (Version None)
Quarter: 2010Q4

REPORT INFORMATION
  Report Type: 
  Country: None (occurrence: None)
  Receive Date: 20101220
  Receipt Date: 20101216
  Transmission Date: 20110411
  Serious: Yes (Hospitalization, Other)
  Sender: FDA-Public Use
  Company Number: BR-ABBOTT-10P-020-0692096-00

PATIENT
  Sex: Female
  Weight: 83 kg

DRUGS (6)
  1. HUMIRA [Suspect]
     Indication: RHEUMATOID ARTHRITIS
     Route: 058
     Dates: start: 20060401, end: 20100905
  2. HUMIRA [Suspect]
     Dates: start: 20101114
  3. METHOTREXATE [Concomitant]
     Indication: RHEUMATOID ARTHRITIS
     Route: 048
  4. CELEBRA [Concomitant]
     Indication: PAIN
     Dosage: 100 OR 200 MG
     Route: 048
  5. ENDOFOLIN [Concomitant]
     Indication: ANAEMIA PROPHYLAXIS
     Route: 048
  6. CHOLECALCIFEROL [Concomitant]
     Indication: RHEUMATOID ARTHRITIS
     Dates: start: 20100101

REACTIONS (2)
  - HAEMORRHAGE [None]
  - LEIOMYOMA [None]
